FAERS Safety Report 7524561-9 (Version None)
Quarter: 2011Q2

REPORT INFORMATION
  Report Type: 
  Country: None (occurrence: None)
  Receive Date: 20110606
  Receipt Date: 20110531
  Transmission Date: 20111010
  Serious: Yes (Hospitalization)
  Sender: FDA-Public Use
  Company Number: US-AMGEN-USACT2011025487

PATIENT
  Age: 63 Year
  Sex: Male

DRUGS (18)
  1. AMIODARONE HCL [Concomitant]
     Dosage: 200 MG, UNK
     Route: 048
  2. CARVEDILOL [Concomitant]
     Dosage: 25 MG, BID
     Route: 048
  3. NPH INSULIN [Concomitant]
     Dosage: UNK UNK, BID
     Route: 058
  4. MUPIROCIN [Concomitant]
     Dosage: UNK UNK, BID
     Route: 045
  5. FLUOROURACIL [Concomitant]
     Dosage: UNK UNK, BID
     Route: 061
  6. LOSARTAN POTASSIUM [Concomitant]
     Dosage: 50 MG, QD
     Route: 048
     Dates: start: 20110502
  7. BLINDED DARBEPOETIN ALFA [Suspect]
     Indication: CARDIAC FAILURE
     Dosage: UNK UNK, Q2WK
     Route: 058
     Dates: start: 20110425, end: 20110518
  8. LISINOPRIL [Concomitant]
     Dosage: 20 MG, QD
     Route: 048
  9. ENOXAPARIN [Concomitant]
     Dosage: 40 MG, QD
     Route: 058
     Dates: start: 20110502, end: 20110502
  10. LACTULOSE [Concomitant]
     Dosage: 306 UNK, UNK
     Route: 048
     Dates: start: 20110502, end: 20110502
  11. ASPIRIN [Concomitant]
     Dosage: 325 MG, QD
     Route: 048
  12. HYDROPHILIC [Concomitant]
     Dosage: UNK UNK, QD
     Route: 061
  13. SIMVASTATIN [Concomitant]
     Dosage: 80 MG, QD
     Route: 048
  14. TRAVOPROST [Concomitant]
     Dosage: UNK UNK, QD
     Route: 047
  15. CLOPIDOGREL [Concomitant]
     Dosage: 25 MG, QD
     Route: 048
  16. PLACEBO [Suspect]
     Indication: CARDIAC FAILURE
     Dosage: UNK UNK, Q2WK
     Route: 058
     Dates: start: 20110425, end: 20110518
  17. DESONIDE [Concomitant]
     Dosage: UNK UNK, BID
     Route: 061
  18. LASIX [Concomitant]
     Dosage: 80 MG, QD
     Route: 048
     Dates: start: 20110502

REACTIONS (1)
  - VENTRICULAR TACHYCARDIA [None]
